FAERS Safety Report 12917364 (Version 2)
Quarter: 2016Q4

REPORT INFORMATION
  Report Type: Spontaneous
  Country: IT (occurrence: IT)
  Receive Date: 20161107
  Receipt Date: 20161109
  Transmission Date: 20170207
  Serious: Yes (Hospitalization)
  Sender: FDA-Public Use
  Company Number: IT-SA-2016SA201212

PATIENT
  Age: 48 Year
  Sex: Female

DRUGS (4)
  1. ZOLPIDEM [Suspect]
     Active Substance: ZOLPIDEM\ZOLPIDEM TARTRATE
     Indication: DRUG ABUSE
     Dosage: DOSE AND FREQUENCY: TOTAL
     Route: 048
     Dates: start: 20160317, end: 20160317
  2. PAROXETINE. [Concomitant]
     Active Substance: PAROXETINE
     Route: 065
  3. ALPRAZOLAM. [Suspect]
     Active Substance: ALPRAZOLAM
     Indication: DRUG ABUSE
     Dosage: DOSE AND FREQUENCY: TOTAL
     Route: 048
     Dates: start: 20160317, end: 20160317
  4. PAROXETINE. [Suspect]
     Active Substance: PAROXETINE
     Indication: DRUG ABUSE
     Dosage: DOSE AND FREQUENCY: TOTAL
     Route: 048
     Dates: start: 20160317, end: 20160317

REACTIONS (3)
  - Drug abuse [Unknown]
  - Intentional self-injury [Recovering/Resolving]
  - Sopor [Recovering/Resolving]

NARRATIVE: CASE EVENT DATE: 20160317
